FAERS Safety Report 19960929 (Version 1)
Quarter: 2021Q4

REPORT INFORMATION
  Report Type: Spontaneous
  Country: ES (occurrence: ES)
  Receive Date: 20211016
  Receipt Date: 20211016
  Transmission Date: 20220304
  Serious: Yes (Hospitalization, Other)
  Sender: FDA-Public Use
  Company Number: ES-STADA-233945

PATIENT
  Age: 10 Year
  Sex: Male

DRUGS (14)
  1. VORICONAZOLE [Interacting]
     Active Substance: VORICONAZOLE
     Indication: Product used for unknown indication
     Dosage: 9 MILLIGRAM/KILOGRAM, ONCE A DAY
     Route: 065
  2. SIROLIMUS [Interacting]
     Active Substance: SIROLIMUS
     Indication: Immunosuppression
     Dosage: 0.2  MILLIGRAM, ONCE A DAY
     Route: 065
  3. SIROLIMUS [Interacting]
     Active Substance: SIROLIMUS
     Dosage: 1.4  MILLIGRAM, ONCE A DAY
     Route: 065
  4. SIROLIMUS [Interacting]
     Active Substance: SIROLIMUS
     Dosage: 0.6   MILLIGRAM, ONCE A DAY
     Route: 065
  5. SIROLIMUS [Interacting]
     Active Substance: SIROLIMUS
     Dosage: 0.8 MILLIGRAM, ONCE A DAY
     Route: 065
  6. TACROLIMUS [Interacting]
     Active Substance: TACROLIMUS
     Indication: Immunosuppression
     Dosage: 0.6 MILLIGRAM, TWO TIMES A DAY
     Route: 065
  7. TACROLIMUS [Interacting]
     Active Substance: TACROLIMUS
     Dosage: 0.8  MILLIGRAM, TWO TIMES A DAY
     Route: 065
  8. TACROLIMUS [Interacting]
     Active Substance: TACROLIMUS
     Dosage: 0.4 MILLIGRAM, TWO TIMES A DAY
     Route: 065
  9. TACROLIMUS [Interacting]
     Active Substance: TACROLIMUS
     Dosage: 1 MILLIGRAM, TWO TIMES A DAY
     Route: 065
  10. COTRIMOXAZOLE [Concomitant]
     Active Substance: SULFAMETHOXAZOLE\TRIMETHOPRIM
     Indication: Prophylaxis
     Dosage: UNK
     Route: 065
  11. CEFEPIME [Concomitant]
     Active Substance: CEFEPIME HYDROCHLORIDE
     Indication: Product used for unknown indication
     Dosage: UNK
     Route: 065
  12. AMPHOTERICIN B [Concomitant]
     Active Substance: AMPHOTERICIN B
     Indication: Product used for unknown indication
     Dosage: 4 MILLIGRAM/KILOGRAM, ONCE A DAY
     Route: 042
  13. FLUCYTOSINE [Concomitant]
     Active Substance: FLUCYTOSINE
     Indication: Product used for unknown indication
     Dosage: 100 MILLIGRAM/KILOGRAM, ONCE A DAY
     Route: 048
  14. SULFAMETHOXAZOLE\TRIMETHOPRIM [Concomitant]
     Active Substance: SULFAMETHOXAZOLE\TRIMETHOPRIM
     Indication: Prophylaxis
     Dosage: UNK
     Route: 065

REACTIONS (5)
  - Cryptococcosis [Recovered/Resolved]
  - Gastrointestinal disorder [Recovered/Resolved]
  - Visual impairment [Recovered/Resolved]
  - Blood creatinine increased [Recovered/Resolved]
  - Drug interaction [Recovering/Resolving]
